FAERS Safety Report 9601877 (Version 1)
Quarter: 2013Q4

REPORT INFORMATION
  Report Type: Spontaneous
  Country: FR (occurrence: FR)
  Receive Date: 20131007
  Receipt Date: 20131007
  Transmission Date: 20140711
  Serious: Yes (Life-Threatening)
  Sender: FDA-Public Use
  Company Number: FR-SA-2013SA097677

PATIENT
  Age: 79 Year
  Sex: Female

DRUGS (9)
  1. AMAREL [Suspect]
     Indication: TYPE 2 DIABETES MELLITUS
     Route: 048
  2. PROFENID [Suspect]
     Indication: SCIATICA
     Route: 048
     Dates: start: 20130730, end: 20130805
  3. COTAREG [Suspect]
     Indication: HYPERTENSION
     Dosage: DOSE:1 UNIT(S)
     Route: 048
  4. MIOREL [Suspect]
     Indication: SCIATICA
     Route: 048
     Dates: start: 20130730, end: 20130805
  5. KLIPAL CODEIN [Suspect]
     Indication: SCIATICA
     Dosage: DOSE:1 UNIT(S)
     Route: 048
     Dates: start: 20130730, end: 20130805
  6. LIPANTHYL [Concomitant]
     Indication: DYSLIPIDAEMIA
     Dosage: STRENGTH: 145 MG
     Route: 048
  7. LOXEN [Concomitant]
     Indication: HYPERTENSION
     Dosage: STRENGTH: 20 MG
     Route: 048
  8. DAFLON [Concomitant]
     Indication: VENOUS INSUFFICIENCY
     Route: 048
  9. TOPALGIC [Concomitant]
     Indication: PAIN
     Route: 048

REACTIONS (7)
  - Renal failure acute [Recovered/Resolved]
  - Blood albumin increased [Recovered/Resolved]
  - Troponin increased [Recovered/Resolved]
  - Blood creatinine increased [Recovered/Resolved]
  - Hypoglycaemic coma [Recovered/Resolved with Sequelae]
  - Overdose [Unknown]
  - Diarrhoea [Recovered/Resolved]
